FAERS Safety Report 4351212-7 (Version None)
Quarter: 2004Q2

REPORT INFORMATION
  Report Type: 
  Country: None (occurrence: None)
  Receive Date: 20040430
  Receipt Date: 20040430
  Transmission Date: 20050107
  Serious: Yes (Life-Threatening, Hospitalization)
  Sender: FDA-Public Use
  Company Number: None

PATIENT
  Age: 70 Year
  Sex: Female
  Weight: 72.5755 kg

DRUGS (12)
  1. DURAGESIC [Suspect]
     Indication: ANALGESIC EFFECT
     Dosage: 1 PATCH EVERY 3 DAYS
  2. PROTONIX [Concomitant]
  3. PLAVIX [Concomitant]
  4. TOPROL-XL [Concomitant]
  5. ASPIRIN [Concomitant]
  6. TRAMADOL HCL [Concomitant]
  7. CELEXA [Concomitant]
  8. ALPRAZOLAM [Concomitant]
  9. LIPITOR [Concomitant]
  10. SINGULAIR [Concomitant]
  11. TRAZODONE HCL [Concomitant]
  12. PHENERGAN [Concomitant]

REACTIONS (4)
  - COMA [None]
  - MEDICATION ERROR [None]
  - OVERDOSE [None]
  - PULSE ABSENT [None]
